FAERS Safety Report 13520283 (Version 2)
Quarter: 2017Q2

REPORT INFORMATION
  Report Type: Spontaneous
  Country: SE (occurrence: SE)
  Receive Date: 20170507
  Receipt Date: 20170512
  Transmission Date: 20170830
  Serious: Yes (Other)
  Sender: FDA-Public Use
  Company Number: PHHY2017SE065726

PATIENT
  Sex: Female

DRUGS (1)
  1. VOLTAREN [Suspect]
     Active Substance: DICLOFENAC SODIUM
     Indication: CHOLELITHIASIS
     Route: 065
     Dates: start: 1998

REACTIONS (2)
  - Rectal cancer [Unknown]
  - Abdominal hernia [Not Recovered/Not Resolved]
